FAERS Safety Report 21628357 (Version 2)
Quarter: 2022Q4

REPORT INFORMATION
  Report Type: Report from Study
  Country: BR (occurrence: BR)
  Receive Date: 20221122
  Receipt Date: 20221128
  Transmission Date: 20230113
  Serious: Yes (Death, Hospitalization, Other)
  Sender: FDA-Public Use
  Company Number: BR-002147023-NVSC2022BR261944

PATIENT
  Sex: Female
  Weight: 50 kg

DRUGS (1)
  1. AMLODIPINE\VALSARTAN [Suspect]
     Active Substance: AMLODIPINE\VALSARTAN
     Indication: Hypertension
     Dosage: 1 DOSAGE FORM, QD (STARTED ON 14 YEARS AGO)
     Route: 048

REACTIONS (6)
  - Pneumonia [Fatal]
  - Urinary tract infection [Recovered/Resolved]
  - Feeding disorder [Not Recovered/Not Resolved]
  - Gait inability [Not Recovered/Not Resolved]
  - Fall [Not Recovered/Not Resolved]
  - Hiatus hernia [Not Recovered/Not Resolved]

NARRATIVE: CASE EVENT DATE: 20210101
